FAERS Safety Report 16577724 (Version 1)
Quarter: 2019Q3

REPORT INFORMATION
  Report Type: Spontaneous
  Country: US (occurrence: US)
  Receive Date: 20190603
  Receipt Date: 20190603
  Transmission Date: 20191004
  Serious: No
  Sender: FDA-Public Use
  Company Number: None

PATIENT
  Age: 68 Year
  Sex: Male

DRUGS (1)
  1. REPATHA [Suspect]
     Active Substance: EVOLOCUMAB
     Dates: start: 20190327

REACTIONS (4)
  - Throat irritation [None]
  - Nasal pruritus [None]
  - Seasonal allergy [None]
  - Nasal dryness [None]

NARRATIVE: CASE EVENT DATE: 20190527
